FAERS Safety Report 7447589-6 (Version None)
Quarter: 2011Q2

REPORT INFORMATION
  Report Type: 
  Country: None (occurrence: None)
  Receive Date: 20110429
  Receipt Date: 20110419
  Transmission Date: 20111010
  Serious: Yes (Other)
  Sender: FDA-Public Use
  Company Number: JP-CEPHALON-2011002114

PATIENT
  Age: 43 Year
  Sex: Male

DRUGS (1)
  1. BENDAMUSTINE HCL [Suspect]
     Indication: B-CELL LYMPHOMA
     Route: 042
     Dates: start: 20110323, end: 20110324

REACTIONS (2)
  - VASCULITIS [None]
  - LYMPHOCYTE COUNT DECREASED [None]
